FAERS Safety Report 9006536 (Version 2)
Quarter: 2013Q1

REPORT INFORMATION
  Report Type: Spontaneous
  Country: US (occurrence: US)
  Receive Date: 20130110
  Receipt Date: 20130228
  Transmission Date: 20140127
  Serious: Yes (Other)
  Sender: FDA-Public Use
  Company Number: US-BAYER-2013-003284

PATIENT
  Age: 43 Year
  Sex: Female
  Weight: 140.4 kg

DRUGS (1)
  1. MIRENA [Suspect]
     Indication: MENSTRUATION IRREGULAR
     Dosage: 20 MCG/24HR, CONT
     Route: 015
     Dates: start: 20120920, end: 20130103

REACTIONS (3)
  - Post procedural haemorrhage [Unknown]
  - Device dislocation [Unknown]
  - Genital haemorrhage [Unknown]
